FAERS Safety Report 6625813-7 (Version None)
Quarter: 2010Q1

REPORT INFORMATION
  Report Type: 
  Country: None (occurrence: None)
  Receive Date: 20100310
  Receipt Date: 20100304
  Transmission Date: 20100710
  Serious: Yes (Death)
  Sender: FDA-Public Use
  Company Number: JP-MERCK-1003USA01006

PATIENT
  Age: 91 Year
  Sex: Male

DRUGS (5)
  1. JANUVIA [Suspect]
     Indication: DIABETES MELLITUS
     Route: 048
     Dates: start: 20100130, end: 20100202
  2. FUROSEMIDE [Concomitant]
     Route: 065
  3. CORINAEL L [Concomitant]
     Route: 048
  4. RENIVEZE [Concomitant]
     Route: 048
  5. TIAPRIDE HYDROCHLORIDE [Concomitant]
     Route: 048

REACTIONS (1)
  - MYOCARDIAL INFARCTION [None]
